FAERS Safety Report 13393122 (Version 1)
Quarter: 2017Q1

REPORT INFORMATION
  Report Type: Spontaneous
  Country: US (occurrence: US)
  Receive Date: 20170331
  Receipt Date: 20170331
  Transmission Date: 20170429
  Serious: No
  Sender: FDA-Public Use
  Company Number: US-ELI_LILLY_AND_COMPANY-US201608004605

PATIENT
  Age: 66 Year
  Sex: Female

DRUGS (1)
  1. CYMBALTA [Suspect]
     Active Substance: DULOXETINE HYDROCHLORIDE
     Indication: PRODUCT USED FOR UNKNOWN INDICATION
     Dosage: UNK, UNKNOWN
     Route: 065
     Dates: end: 20150506

REACTIONS (8)
  - Overdose [Unknown]
  - Vertigo [Unknown]
  - Nausea [Unknown]
  - Drug withdrawal syndrome [Unknown]
  - Tremor [Unknown]
  - Vomiting [Unknown]
  - Dizziness [Unknown]
  - Nightmare [Unknown]

NARRATIVE: CASE EVENT DATE: 20150506
